FAERS Safety Report 10093506 (Version 1)
Quarter: 2014Q2

REPORT INFORMATION
  Report Type: Spontaneous
  Country: US (occurrence: US)
  Receive Date: 20140421
  Receipt Date: 20140421
  Transmission Date: 20141212
  Serious: No
  Sender: FDA-Public Use
  Company Number: US-SA-2014SA000168

PATIENT
  Age: 69 Year
  Sex: Female

DRUGS (2)
  1. ALLEGRA [Suspect]
     Indication: RHINORRHOEA
     Dosage: FREQUNECY: QD, PRN
     Route: 048
     Dates: start: 201312
  2. MOTRIN [Concomitant]
     Route: 065

REACTIONS (2)
  - Rhinorrhoea [Not Recovered/Not Resolved]
  - Extra dose administered [Unknown]
